FAERS Safety Report 8565222 (Version 3)
Quarter: 2015Q2

REPORT INFORMATION
  Report Type: Spontaneous
  Country: US (occurrence: US)
  Receive Date: 20120516
  Receipt Date: 20150521
  Transmission Date: 20150821
  Serious: Yes (Hospitalization)
  Sender: FDA-Public Use
  Company Number: US-BAYER-2012-046683

PATIENT
  Age: 32 Year
  Sex: Female
  Weight: 61.22 kg

DRUGS (9)
  1. YAZ [Suspect]
     Active Substance: DROSPIRENONE\ETHINYL ESTRADIOL
     Indication: MENSTRUAL CYCLE MANAGEMENT
     Dosage: UNK
     Dates: start: 200701, end: 20080616
  2. COLACE [Concomitant]
     Active Substance: DOCUSATE SODIUM
  3. YAZ [Suspect]
     Active Substance: DROSPIRENONE\ETHINYL ESTRADIOL
     Indication: DYSMENORRHOEA
  4. SENNOSIDE [Concomitant]
     Active Substance: SENNOSIDES
  5. CIPROFLOXACIN. [Concomitant]
     Active Substance: CIPROFLOXACIN
  6. SYNTHROID [Concomitant]
     Active Substance: LEVOTHYROXINE SODIUM
     Indication: HYPOTHYROIDISM
  7. FLEET [SODIUM CITRATE,SODIUM LAURYL SULFOACETATE] [Suspect]
     Active Substance: SODIUM CITRATE\SODIUM LAURYL SULFOACETATE
  8. MILK OF MAGNESIA [Concomitant]
     Active Substance: MAGNESIUM HYDROXIDE
  9. SYNTHROID [Concomitant]
     Active Substance: LEVOTHYROXINE SODIUM
     Dosage: 75 UG, QD

REACTIONS (17)
  - Emotional distress [None]
  - Disorientation [Recovered/Resolved]
  - Anxiety [None]
  - Peroneal nerve palsy [Recovered/Resolved]
  - Disturbance in attention [Recovered/Resolved]
  - Pain [Recovered/Resolved]
  - Aphasia [Recovered/Resolved]
  - Dysarthria [Recovered/Resolved]
  - Cerebral artery thrombosis [Recovered/Resolved]
  - Gait disturbance [Recovered/Resolved]
  - Product use issue [None]
  - Memory impairment [Recovered/Resolved]
  - Deep vein thrombosis [Recovering/Resolving]
  - Injury [Recovered/Resolved]
  - General physical health deterioration [Recovered/Resolved]
  - Hemiparesis [Recovered/Resolved]
  - Mental retardation [Recovered/Resolved]

NARRATIVE: CASE EVENT DATE: 20080616
